FAERS Safety Report 6939301-1 (Version None)
Quarter: 2010Q3

REPORT INFORMATION
  Report Type: 
  Country: None (occurrence: None)
  Receive Date: 20100824
  Receipt Date: 20100813
  Transmission Date: 20110219
  Serious: Yes (Hospitalization, Other)
  Sender: FDA-Public Use
  Company Number: AU-WYE-G06401010

PATIENT
  Age: 38 Year
  Sex: Female

DRUGS (7)
  1. PRISTIQ [Suspect]
     Indication: DEPRESSION
     Route: 048
     Dates: start: 20100702, end: 20100705
  2. PRISTIQ [Suspect]
     Route: 048
     Dates: start: 20100707, end: 20100701
  3. NUVARING [Concomitant]
  4. NARAMIG [Concomitant]
     Indication: MIGRAINE
     Dosage: 2.5MG TABLET, UP TO 5MG DAILY WHEN REQUIRED
     Route: 048
     Dates: start: 20100526
  5. TRAMADOL HCL [Concomitant]
     Indication: NECK PAIN
     Dosage: 50MG TAB 1-2 FOUR TIMES A DAY WHEN REQUIRED (ORAL), 100MG INJ 04-JUL-2010 AND 05-JUL-2010
  6. TRAMADOL HCL [Concomitant]
     Indication: BACK PAIN
  7. TRAMADOL HCL [Concomitant]
     Indication: MIGRAINE

REACTIONS (8)
  - ANXIETY [None]
  - HYPONATRAEMIA [None]
  - MIGRAINE [None]
  - MUSCLE SPASMS [None]
  - MYALGIA [None]
  - NAUSEA [None]
  - SEROTONIN SYNDROME [None]
  - TREMOR [None]
